FAERS Safety Report 5037127-X (Version None)
Quarter: 2006Q2

REPORT INFORMATION
  Report Type: 
  Country: None (occurrence: None)
  Receive Date: 20060622
  Receipt Date: 20060605
  Transmission Date: 20061013
  Serious: Yes (Hospitalization)
  Sender: FDA-Public Use
  Company Number: DSA_70882_2006

PATIENT
  Age: 53 Year
  Sex: Female
  Weight: 70 kg

DRUGS (2)
  1. DURACLON [Suspect]
     Indication: ANAESTHESIA
     Dosage: 1 MG ONCE EP
     Route: 008
     Dates: start: 20060314, end: 20060314
  2. LIDOCAINE [Suspect]
     Indication: ANAESTHESIA
     Dosage: 75 MG ONCE EP
     Route: 008
     Dates: start: 20060314, end: 20060314

REACTIONS (4)
  - BRADYCARDIA [None]
  - DIZZINESS POSTURAL [None]
  - HYPOTENSION [None]
  - OVERDOSE [None]
